FAERS Safety Report 15691134 (Version 2)
Quarter: 2019Q2

REPORT INFORMATION
  Report Type: Spontaneous
  Country: US (occurrence: US)
  Receive Date: 20181205
  Receipt Date: 20190620
  Transmission Date: 20190711
  Serious: No
  Sender: FDA-Public Use
  Company Number: US-MYLANLABS-2018M1087768

PATIENT
  Sex: Female
  Weight: 50 kg

DRUGS (1)
  1. DILTIAZEM HYDROCHLORIDE TABLETS, USP [Suspect]
     Active Substance: DILTIAZEM HYDROCHLORIDE
     Indication: HYPERTENSION
     Dosage: UNK
     Route: 048

REACTIONS (4)
  - Rash [Not Recovered/Not Resolved]
  - Product use complaint [Unknown]
  - Chest discomfort [Not Recovered/Not Resolved]
  - Product size issue [Unknown]
